FAERS Safety Report 4606204-7 (Version None)
Quarter: 2005Q1

REPORT INFORMATION
  Report Type: 
  Country: None (occurrence: None)
  Receive Date: 20050115
  Receipt Date: 20040311
  Transmission Date: 20050727
  Serious: Yes (Other)
  Sender: FDA-Public Use
  Company Number: A03200400752

PATIENT
  Age: 76 Year
  Sex: Male

DRUGS (6)
  1. AMBIEN [Suspect]
     Indication: INSOMNIA
     Dosage: 5 MG HS - ORAL
     Route: 048
     Dates: start: 20031216, end: 20040305
  2. FINASTERIDE [Concomitant]
  3. ALLOPURINOL [Concomitant]
  4. METOPROLOL SUCCINATE [Concomitant]
  5. HYDROCHLOROTHIAZIDE [Concomitant]
  6. EFFEXOR [Concomitant]

REACTIONS (3)
  - ABNORMAL DREAMS [None]
  - HALLUCINATION, VISUAL [None]
  - RESTLESSNESS [None]
